FAERS Safety Report 18622087 (Version 1)
Quarter: 2020Q4

REPORT INFORMATION
  Report Type: Spontaneous
  Country: IT (occurrence: IT)
  Receive Date: 20201216
  Receipt Date: 20201216
  Transmission Date: 20210114
  Serious: Yes (Other)
  Sender: FDA-Public Use
  Company Number: IT-AUROBINDO-AUR-APL-2020-061242

PATIENT
  Age: 77 Year
  Sex: Male

DRUGS (5)
  1. CARDIOASPIRIN [Suspect]
     Active Substance: ASPIRIN
     Indication: COVID-19
     Dosage: 100 MILLIGRAM, ONCE A DAY
     Route: 065
  2. HYDROXYCHLOROQUINE [Suspect]
     Active Substance: HYDROXYCHLOROQUINE
     Indication: COVID-19
     Dosage: 800 MILLIGRAM, ONCE A DAY
     Route: 065
  3. RITONAVIR. [Suspect]
     Active Substance: RITONAVIR
     Indication: COVID-19
     Dosage: 100 MILLIGRAM, ONCE A DAY
     Route: 065
  4. VALACICLOVIR [Suspect]
     Active Substance: VALACYCLOVIR HYDROCHLORIDE
     Indication: COVID-19
     Dosage: 3000 MILLIGRAM, ONCE A DAY
     Route: 065
  5. DARUNAVIR [Suspect]
     Active Substance: DARUNAVIR
     Indication: COVID-19
     Dosage: 800 MILLIGRAM, ONCE A DAY
     Route: 065

REACTIONS (3)
  - Off label use [Unknown]
  - Paranoia [Recovered/Resolved]
  - Delirium [Recovered/Resolved]
